FAERS Safety Report 4854909-5 (Version None)
Quarter: 2005Q4

REPORT INFORMATION
  Report Type: 
  Country: None (occurrence: None)
  Receive Date: 20051213
  Receipt Date: 20051201
  Transmission Date: 20060501
  Serious: Yes (Disabling, Other)
  Sender: FDA-Public Use
  Company Number: 2005146358

PATIENT
  Age: 55 Year
  Sex: Male
  Weight: 98 kg

DRUGS (3)
  1. ATORVASTATIN CALCIUM [Suspect]
     Indication: ILL-DEFINED DISORDER
     Dosage: 20 MG (1 IN 1 D), ORAL
     Route: 048
     Dates: end: 20051003
  2. CHOLESTYRAMINE [Concomitant]
  3. CANDESARTAN CILEXETIL (CANDESARTAN CILEXETIL) [Concomitant]

REACTIONS (6)
  - BLOOD CREATINE PHOSPHOKINASE INCREASED [None]
  - DIFFICULTY IN WALKING [None]
  - MYALGIA [None]
  - NERVOUS SYSTEM DISORDER [None]
  - POLYNEUROPATHY [None]
  - VIRAL INFECTION [None]
